FAERS Safety Report 9987479 (Version 2)
Quarter: 2014Q2

REPORT INFORMATION
  Report Type: Spontaneous
  Country: US (occurrence: US)
  Receive Date: 20140307
  Receipt Date: 20140402
  Transmission Date: 20141212
  Serious: No
  Sender: FDA-Public Use
  Company Number: US-AMGEN-USASP2014011373

PATIENT
  Age: 42 Year
  Sex: Female

DRUGS (1)
  1. ENBREL [Suspect]
     Indication: RHEUMATOID ARTHRITIS
     Dosage: 25 MG, TWO INJECTIONS ONCE A WEEK
     Route: 065
     Dates: start: 201402

REACTIONS (8)
  - Gait disturbance [Not Recovered/Not Resolved]
  - Pain [Recovered/Resolved]
  - Arthralgia [Not Recovered/Not Resolved]
  - Pyrexia [Not Recovered/Not Resolved]
  - Chills [Recovered/Resolved]
  - Cough [Recovered/Resolved]
  - Injection site bruising [Not Recovered/Not Resolved]
  - Bronchitis [Recovered/Resolved]
